FAERS Safety Report 15404257 (Version 4)
Quarter: 2019Q1

REPORT INFORMATION
  Report Type: Spontaneous
  Country: BE (occurrence: BE)
  Receive Date: 20180919
  Receipt Date: 20190311
  Transmission Date: 20190417
  Serious: Yes (Hospitalization)
  Sender: FDA-Public Use
  Company Number: BE-ELI_LILLY_AND_COMPANY-BE201809007909

PATIENT
  Sex: Female
  Weight: 75 kg

DRUGS (9)
  1. OLUMIANT [Suspect]
     Active Substance: BARICITINIB
     Indication: RHEUMATOID ARTHRITIS
     Dosage: 4 MG, DAILY
     Route: 048
     Dates: start: 20180626, end: 20180816
  2. AMLODIPINE [Concomitant]
     Active Substance: AMLODIPINE BESYLATE
     Indication: HYPERTENSION
     Dosage: 5 MG, DAILY
     Route: 048
  3. LISINOPRIL. [Concomitant]
     Active Substance: LISINOPRIL
     Indication: HYPERTENSION
     Dosage: 20 MG, DAILY
     Route: 048
  4. LEDERTREXATE SODIUM [Concomitant]
     Indication: RHEUMATOID ARTHRITIS
     Dosage: 15 MG, WEEKLY (1/W)
     Route: 048
  5. MOBIC [Concomitant]
     Active Substance: MELOXICAM
     Indication: RHEUMATOID ARTHRITIS
     Dosage: 15 MG, DAILY
     Route: 048
  6. OMEPRAZOLE. [Concomitant]
     Active Substance: OMEPRAZOLE
     Indication: RHEUMATOID ARTHRITIS
     Dosage: 20 MG, DAILY
     Route: 048
  7. PREDNISONE. [Concomitant]
     Active Substance: PREDNISONE
     Dosage: 5 MG, DAILY
  8. FOLIUMZUUR [Concomitant]
     Active Substance: FOLIC ACID
     Route: 048
  9. SIMVASTATIN. [Concomitant]
     Active Substance: SIMVASTATIN
     Route: 048

REACTIONS (26)
  - Drug reaction with eosinophilia and systemic symptoms [Recovered/Resolved]
  - Septic shock [Unknown]
  - Coccidioidomycosis [Unknown]
  - Myelodysplastic syndrome [Unknown]
  - Hot flush [Unknown]
  - Dry skin [Unknown]
  - Decreased appetite [Recovered/Resolved]
  - Type 2 diabetes mellitus [Unknown]
  - Hyperkeratosis [Unknown]
  - Night sweats [Unknown]
  - Oedema peripheral [Unknown]
  - Alopecia [Unknown]
  - Follicular dendritic cell sarcoma [Recovering/Resolving]
  - Fungal infection [Recovering/Resolving]
  - Toxicity to various agents [Recovered/Resolved]
  - Drug-induced liver injury [Recovered/Resolved]
  - Microcytic anaemia [Unknown]
  - Dehydration [Unknown]
  - Poor quality sleep [Unknown]
  - Pruritus [Not Recovered/Not Resolved]
  - Abdominal pain upper [Recovering/Resolving]
  - Campylobacter gastroenteritis [Unknown]
  - Malaise [Unknown]
  - Skin hyperpigmentation [Unknown]
  - Histoplasmosis [Unknown]
  - Atypical mycobacterial infection [Unknown]

NARRATIVE: CASE EVENT DATE: 201808
